FAERS Safety Report 12170506 (Version 3)
Quarter: 2016Q2

REPORT INFORMATION
  Report Type: Spontaneous
  Country: JP (occurrence: JP)
  Receive Date: 20160311
  Receipt Date: 20160608
  Transmission Date: 20160815
  Serious: Yes (Other)
  Sender: FDA-Public Use
  Company Number: JP-PFIZER INC-2016130678

PATIENT
  Age: 57 Year
  Sex: Male
  Weight: 80.5 kg

DRUGS (3)
  1. RELPAX [Suspect]
     Active Substance: ELETRIPTAN HYDROBROMIDE
     Route: 048
  2. LOXONIN [Suspect]
     Active Substance: LOXOPROFEN SODIUM
  3. LYRICA [Suspect]
     Active Substance: PREGABALIN
     Indication: NEURALGIA
     Route: 048

REACTIONS (5)
  - Overdose [Recovered/Resolved]
  - Drug dependence [Unknown]
  - Somnolence [Recovered/Resolved]
  - Drug abuse [Unknown]
  - Dizziness [Recovered/Resolved]
